FAERS Safety Report 9958597 (Version 1)
Quarter: 2014Q1

REPORT INFORMATION
  Report Type: Spontaneous
  Country: US (occurrence: None)
  Receive Date: 20140124
  Receipt Date: 20140124
  Transmission Date: 20141002
  Serious: Yes (Other)
  Sender: FDA-Public Use
  Company Number: 2011AP001490

PATIENT
  Age: 68 Year
  Sex: Male

DRUGS (6)
  1. LITHIUM CARBONATE CAPSULES [Suspect]
     Indication: BIPOLAR DISORDER
     Route: 048
     Dates: start: 2008
  2. CARBAMAZEPINE [Concomitant]
  3. OLANZAPINE [Concomitant]
  4. VALPROIC ACID [Concomitant]
  5. OXCARBAZEPINE [Concomitant]
  6. LAMOTRIGINE [Concomitant]

REACTIONS (3)
  - Toxicity to various agents [None]
  - Somnolence [None]
  - Dysarthria [None]
